FAERS Safety Report 13466764 (Version 3)
Quarter: 2017Q3

REPORT INFORMATION
  Report Type: Spontaneous
  Country: IT (occurrence: IT)
  Receive Date: 20170421
  Receipt Date: 20170828
  Transmission Date: 20171127
  Serious: Yes (Hospitalization)
  Sender: FDA-Public Use
  Company Number: IT-TEVA-761392ACC

PATIENT
  Age: 73 Year
  Sex: Male

DRUGS (3)
  1. RIBAVIRIN. [Suspect]
     Active Substance: RIBAVIRIN
     Indication: CHRONIC HEPATITIS C
     Dosage: 800 MILLIGRAM DAILY;
     Route: 065
     Dates: start: 20150225, end: 20150302
  2. PREDNISONE. [Concomitant]
     Active Substance: PREDNISONE
  3. SOVALDI [Suspect]
     Active Substance: SOFOSBUVIR
     Indication: CHRONIC HEPATITIS C
     Dosage: 400 MILLIGRAM DAILY;
     Route: 065
     Dates: start: 20150225, end: 20150302

REACTIONS (1)
  - Myasthenia gravis crisis [Unknown]
